FAERS Safety Report 9328280 (Version 1)
Quarter: 2013Q2

REPORT INFORMATION
  Report Type: Spontaneous
  Country: US (occurrence: US)
  Receive Date: 20130604
  Receipt Date: 20130604
  Transmission Date: 20140414
  Serious: No
  Sender: FDA-Public Use
  Company Number: US-SANOFI-AVENTIS-2012SA046521

PATIENT
  Age: 10 Year
  Sex: Male

DRUGS (2)
  1. LANTUS [Suspect]
     Indication: TYPE 1 DIABETES MELLITUS
     Dosage: TAKING 10-12 UNITS OF DAILY DOSE OF INSULIN GLARGINE
     Route: 058
     Dates: start: 2009
  2. HUMALOG [Concomitant]

REACTIONS (3)
  - Bronchitis [Recovered/Resolved]
  - Blood glucose increased [Recovered/Resolved]
  - Blood glucose decreased [Recovered/Resolved]
